FAERS Safety Report 11210104 (Version 2)
Quarter: 2015Q4

REPORT INFORMATION
  Report Type: Spontaneous
  Country: US (occurrence: US)
  Receive Date: 20150622
  Receipt Date: 20151104
  Transmission Date: 20160304
  Serious: No
  Sender: FDA-Public Use
  Company Number: US-009507513-1506USA005449

PATIENT
  Age: 27 Year
  Sex: Male
  Weight: 91.61 kg

DRUGS (3)
  1. LUNESTA [Suspect]
     Active Substance: ESZOPICLONE
     Dosage: 3 MG, UNK
  2. BELSOMRA [Suspect]
     Active Substance: SUVOREXANT
     Dosage: 0.5 TAB,BID
     Route: 048
  3. BELSOMRA [Suspect]
     Active Substance: SUVOREXANT
     Dosage: UNK
     Route: 048

REACTIONS (10)
  - Insomnia [Recovered/Resolved]
  - Dissociation [Recovered/Resolved]
  - Inappropriate schedule of drug administration [Unknown]
  - Sleep disorder [Unknown]
  - Circadian rhythm sleep disorder [Unknown]
  - Nightmare [Recovered/Resolved]
  - Overdose [Unknown]
  - Hallucination, visual [Recovered/Resolved]
  - Sleep phase rhythm disturbance [Unknown]
  - Attention deficit/hyperactivity disorder [Unknown]

NARRATIVE: CASE EVENT DATE: 20150516
